FAERS Safety Report 4411345-3 (Version None)
Quarter: 2004Q3

REPORT INFORMATION
  Report Type: 
  Country: None (occurrence: None)
  Receive Date: 20040727
  Receipt Date: 20000818
  Transmission Date: 20050211
  Serious: Yes (Life-Threatening, Hospitalization)
  Sender: FDA-Public Use
  Company Number: 2000UW03080

PATIENT
  Age: 6 Month
  Weight: 6.9854 kg

DRUGS (2)
  1. DIPRIVAN [Suspect]
     Indication: POSTOPERATIVE CARE
  2. DIPRIVAN [Suspect]
     Indication: SEDATION

REACTIONS (7)
  - ARRHYTHMIA [None]
  - CHROMATURIA [None]
  - HAEMODIALYSIS [None]
  - HEPATIC FAILURE [None]
  - LACTIC ACIDOSIS [None]
  - RENAL FAILURE [None]
  - THERAPY NON-RESPONDER [None]
